FAERS Safety Report 5251061-1 (Version None)
Quarter: 2007Q1

REPORT INFORMATION
  Report Type: 
  Country: None (occurrence: None)
  Receive Date: 20070228
  Receipt Date: 20060817
  Transmission Date: 20070707
  Serious: No
  Sender: FDA-Public Use
  Company Number: US-GLAXOSMITHKLINE-A0617139A

PATIENT
  Age: 44 Year
  Sex: Female

DRUGS (5)
  1. LAMICTAL [Suspect]
     Indication: BIPOLAR DISORDER
     Dosage: 75MG TWICE PER DAY
     Route: 048
     Dates: start: 20060101
  2. LITHIUM CARBONATE [Concomitant]
  3. LEXAPRO [Concomitant]
  4. SYNTHROID [Concomitant]
  5. SUPPLEMENT [Concomitant]

REACTIONS (2)
  - HEADACHE [None]
  - RASH [None]
